FAERS Safety Report 9281843 (Version 37)
Quarter: 2018Q2

REPORT INFORMATION
  Report Type: Report from Study
  Country: CA (occurrence: CA)
  Receive Date: 20130510
  Receipt Date: 20180618
  Transmission Date: 20180711
  Serious: Yes (Hospitalization, Other)
  Sender: FDA-Public Use
  Company Number: CA-ROCHE-1146900

PATIENT
  Age: 49 Year
  Sex: Female
  Weight: 72 kg

DRUGS (24)
  1. FOLIC ACID. [Concomitant]
     Active Substance: FOLIC ACID
  2. ACTEMRA [Suspect]
     Active Substance: TOCILIZUMAB
     Indication: RHEUMATOID ARTHRITIS
     Dosage: MOST RECENT DOSE OF TOCILIZUMAB WAS ON 15/JAN/2013
     Route: 042
     Dates: start: 20120425
  3. RAMIPRIL. [Concomitant]
     Active Substance: RAMIPRIL
  4. TYLENOL [Concomitant]
     Active Substance: ACETAMINOPHEN
  5. ROSUVASTATIN. [Concomitant]
     Active Substance: ROSUVASTATIN
  6. ACTEMRA [Suspect]
     Active Substance: TOCILIZUMAB
     Route: 042
     Dates: start: 20140320, end: 20150713
  7. OMEPRAZOLE. [Concomitant]
     Active Substance: OMEPRAZOLE
  8. HYDROCHLOROTHIAZIDE. [Concomitant]
     Active Substance: HYDROCHLOROTHIAZIDE
  9. ACTEMRA [Suspect]
     Active Substance: TOCILIZUMAB
     Route: 042
     Dates: start: 20160727
  10. CLINDAMYCIN. [Suspect]
     Active Substance: CLINDAMYCIN
     Indication: DENTAL CARE
     Route: 065
  11. CELEBREX [Concomitant]
     Active Substance: CELECOXIB
  12. SIMPONI [Concomitant]
     Active Substance: GOLIMUMAB
  13. METOPROLOL. [Concomitant]
     Active Substance: METOPROLOL
  14. TRAMADOL. [Concomitant]
     Active Substance: TRAMADOL
     Dosage: 3-4 TABS DAILY
     Route: 065
  15. TRAMACET [Concomitant]
     Active Substance: ACETAMINOPHEN\TRAMADOL
  16. PREDNISONE. [Concomitant]
     Active Substance: PREDNISONE
     Dosage: INCREASED, DAILY
     Route: 065
  17. ACTEMRA [Suspect]
     Active Substance: TOCILIZUMAB
     Indication: RHEUMATOID FACTOR POSITIVE
     Route: 042
     Dates: start: 20120524
  18. ACTEMRA [Suspect]
     Active Substance: TOCILIZUMAB
     Indication: RHEUMATOID ARTHRITIS
     Route: 058
     Dates: start: 20160308, end: 2016
  19. ACTONEL [Concomitant]
     Active Substance: RISEDRONATE SODIUM
     Route: 065
  20. PREDNISONE. [Concomitant]
     Active Substance: PREDNISONE
     Dosage: INCREASED, DAILY
     Route: 065
  21. ACTEMRA [Suspect]
     Active Substance: TOCILIZUMAB
     Route: 042
     Dates: start: 20150514
  22. ACTEMRA [Suspect]
     Active Substance: TOCILIZUMAB
     Dosage: 20 MG PER ML
     Route: 042
  23. PANTOPRAZOLE [Concomitant]
     Active Substance: PANTOPRAZOLE
     Route: 065
  24. METHOTREXATE. [Concomitant]
     Active Substance: METHOTREXATE
     Route: 048

REACTIONS (38)
  - Eye pain [Unknown]
  - Infected skin ulcer [Recovered/Resolved]
  - Gastroenteritis viral [Unknown]
  - Fall [Unknown]
  - Limb injury [Unknown]
  - Toothache [Recovered/Resolved]
  - Cough [Recovering/Resolving]
  - Wound infection [Recovered/Resolved]
  - Headache [Unknown]
  - Infection [Unknown]
  - Abdominal discomfort [Unknown]
  - Infusion related reaction [Unknown]
  - Blood pressure diastolic decreased [Unknown]
  - Wound complication [Not Recovered/Not Resolved]
  - Headache [Recovered/Resolved]
  - Lung disorder [Not Recovered/Not Resolved]
  - Dehydration [Unknown]
  - Joint swelling [Recovering/Resolving]
  - Tooth disorder [Unknown]
  - Vasodilatation [Not Recovered/Not Resolved]
  - Middle insomnia [Not Recovered/Not Resolved]
  - Arthralgia [Recovered/Resolved]
  - Myalgia [Recovered/Resolved]
  - Joint effusion [Unknown]
  - Joint dislocation [Recovered/Resolved]
  - Foot deformity [Unknown]
  - Contusion [Not Recovered/Not Resolved]
  - Skin discolouration [Not Recovered/Not Resolved]
  - Joint stiffness [Unknown]
  - Blood pressure systolic increased [Unknown]
  - Vomiting [Unknown]
  - Arthropathy [Unknown]
  - Limb deformity [Not Recovered/Not Resolved]
  - Rheumatoid arthritis [Not Recovered/Not Resolved]
  - Nasopharyngitis [Not Recovered/Not Resolved]
  - Impaired healing [Recovered/Resolved]
  - Herpes zoster [Recovered/Resolved]
  - Arthralgia [Unknown]

NARRATIVE: CASE EVENT DATE: 20121009
